FAERS Safety Report 13390328 (Version 1)
Quarter: 2017Q1

REPORT INFORMATION
  Report Type: Spontaneous
  Country: US (occurrence: US)
  Receive Date: 20170330
  Receipt Date: 20170330
  Transmission Date: 20170429
  Serious: Yes (Hospitalization)
  Sender: FDA-Public Use
  Company Number: None

PATIENT
  Age: 87 Year
  Sex: Male
  Weight: 91.3 kg

DRUGS (1)
  1. FOSINOPRIL [Suspect]
     Active Substance: FOSINOPRIL
     Indication: HYPERTENSION
     Route: 048
     Dates: start: 20100915, end: 20151026

REACTIONS (1)
  - Pemphigoid [None]

NARRATIVE: CASE EVENT DATE: 20151026
